FAERS Safety Report 21959306 (Version 1)
Quarter: 2023Q1

REPORT INFORMATION
  Report Type: Spontaneous
  Country: AU (occurrence: AU)
  Receive Date: 20230206
  Receipt Date: 20230206
  Transmission Date: 20230418
  Serious: Yes (Other)
  Sender: FDA-Public Use
  Company Number: AU-PFIZER INC-202300046461

PATIENT
  Age: 9 Year
  Sex: Female
  Weight: 47.8 kg

DRUGS (14)
  1. VINCRISTINE SULFATE [Suspect]
     Active Substance: VINCRISTINE SULFATE
     Indication: Neoplasm malignant
     Dosage: UNK, CYCLIC
  2. ETOPOSIDE [Suspect]
     Active Substance: ETOPOSIDE
     Indication: Neoplasm malignant
     Dosage: UNK, CYCLIC
  3. CARBOPLATIN [Suspect]
     Active Substance: CARBOPLATIN
     Indication: Neoplasm malignant
     Dosage: CYCLIC
  4. CYTARABINE [Suspect]
     Active Substance: CYTARABINE
     Indication: Neoplasm malignant
     Dosage: UNK, CYCLIC
  5. DOXORUBICIN HYDROCHLORIDE [Suspect]
     Active Substance: DOXORUBICIN HYDROCHLORIDE
     Indication: Neoplasm malignant
     Dosage: UNK, CYCLIC
  6. CISPLATIN [Suspect]
     Active Substance: CISPLATIN
     Indication: Neoplasm malignant
     Dosage: UNK UNK, CYCLIC
  7. IDARUBICIN [Suspect]
     Active Substance: IDARUBICIN
     Indication: Neoplasm malignant
     Dosage: UNK, CYCLIC
  8. CYCLOPHOSPHAMIDE [Suspect]
     Active Substance: CYCLOPHOSPHAMIDE
     Indication: Neoplasm malignant
     Dosage: UNK, CYCLIC
  9. ACTINOMYCIN D [Suspect]
     Active Substance: DACTINOMYCIN
     Indication: Neoplasm malignant
     Dosage: UNK, CYCLIC
  10. TRETINOIN [Suspect]
     Active Substance: TRETINOIN
     Indication: Neoplasm malignant
     Dosage: UNK, CYCLIC
  11. MELPHALAN [Suspect]
     Active Substance: MELPHALAN
     Indication: Neoplasm malignant
     Dosage: UNK, CYCLIC
  12. FLUDARABINE [Suspect]
     Active Substance: FLUDARABINE PHOSPHATE
     Indication: Neoplasm malignant
     Dosage: UNK, CYCLIC
  13. BUSULFAN [Suspect]
     Active Substance: BUSULFAN
     Indication: Neoplasm malignant
     Dosage: UNK, CYCLIC
  14. ATGAM [Suspect]
     Active Substance: EQUINE THYMOCYTE IMMUNE GLOBULIN
     Indication: Neoplasm malignant
     Dosage: UNK, CYCLIC

REACTIONS (1)
  - Central hypothyroidism [Recovered/Resolved]
